FAERS Safety Report 14802749 (Version 3)
Quarter: 2018Q3

REPORT INFORMATION
  Report Type: Report from Study
  Country: DE (occurrence: DE)
  Receive Date: 20180424
  Receipt Date: 20180822
  Transmission Date: 20181010
  Serious: Yes (Other)
  Sender: FDA-Public Use
  Company Number: DE-PFIZER INC-2018159989

PATIENT
  Age: 71 Year
  Sex: Female

DRUGS (9)
  1. PACLITAXEL. [Suspect]
     Active Substance: PACLITAXEL
     Indication: HER-2 POSITIVE BREAST CANCER
     Dosage: 80 MG/M2, DAY 1, 8, 15 OF A CYCLE OF 21 DAYS
     Route: 065
     Dates: start: 20170425, end: 20171229
  2. ZOMETA [Suspect]
     Active Substance: ZOLEDRONIC ACID
     Dosage: 4 MG, UNK
     Route: 065
     Dates: start: 20170628
  3. LETROZOLE. [Suspect]
     Active Substance: LETROZOLE
     Indication: BREAST CANCER
     Dosage: 2.5 MG, 1X/DAY
     Dates: start: 20180522
  4. PERTUZUMAB. [Suspect]
     Active Substance: PERTUZUMAB
     Indication: HER-2 POSITIVE BREAST CANCER
     Dosage: 840 MG, LOADING DOSE
     Route: 065
  5. TRASTUZUMAB. [Suspect]
     Active Substance: TRASTUZUMAB
     Indication: HER-2 POSITIVE BREAST CANCER
     Dosage: 8 MG/KG, LOADING DOSE
     Route: 065
  6. PERTUZUMAB. [Suspect]
     Active Substance: PERTUZUMAB
     Dosage: 420 MG, UNK
     Route: 065
     Dates: start: 20170425
  7. TRASTUZUMAB. [Suspect]
     Active Substance: TRASTUZUMAB
     Dosage: 6 MG/KG, UNK
     Route: 065
     Dates: start: 20170425
  8. TRASTUZUMAB. [Suspect]
     Active Substance: TRASTUZUMAB
     Dosage: 3.6 MG/KG, EVERY 21 DAYS
     Dates: start: 20180522
  9. ANASTROZOL [Suspect]
     Active Substance: ANASTROZOLE
     Indication: BREAST CANCER
     Dosage: 1 MG, UNK
     Route: 065
     Dates: start: 20171229

REACTIONS (12)
  - Flank pain [Recovered/Resolved]
  - Vomiting [Recovered/Resolved]
  - Stomatitis [Recovered/Resolved]
  - Nail discolouration [Recovered/Resolved]
  - Skin toxicity [Recovered/Resolved]
  - Stomatitis [Not Recovered/Not Resolved]
  - Dry skin [Recovered/Resolved]
  - Skin toxicity [Recovered/Resolved]
  - Nail discolouration [Recovered/Resolved]
  - Polyneuropathy [Not Recovered/Not Resolved]
  - Nausea [Recovered/Resolved]
  - Pain in extremity [Recovered/Resolved]

NARRATIVE: CASE EVENT DATE: 20170510
